FAERS Safety Report 21329642 (Version 12)
Quarter: 2023Q2

REPORT INFORMATION
  Report Type: Report from Study
  Country: GB (occurrence: None)
  Receive Date: 20220913
  Receipt Date: 20230428
  Transmission Date: 20230721
  Serious: Yes (Hospitalization)
  Sender: FDA-Public Use
  Company Number: GB-Eisai Medical Research-EC-2022-123136

PATIENT
  Age: 61 Year
  Sex: Male
  Weight: 71 kg

DRUGS (21)
  1. LENVATINIB [Suspect]
     Active Substance: LENVATINIB
     Indication: Clear cell renal cell carcinoma
     Dosage: STARTING DOSE AT 20 MG, FLUCTUATED DOSE
     Route: 048
     Dates: start: 20220413
  2. PEMBROLIZUMAB [Suspect]
     Active Substance: PEMBROLIZUMAB
     Indication: Clear cell renal cell carcinoma
     Route: 041
     Dates: start: 20220413, end: 20220825
  3. BISOPROLOL [Concomitant]
     Active Substance: BISOPROLOL
     Dates: start: 200101, end: 20220819
  4. GABAPENTIN [Concomitant]
     Active Substance: GABAPENTIN
     Dates: start: 20220404
  5. ACETAMINOPHEN [Concomitant]
     Active Substance: ACETAMINOPHEN
     Dates: start: 20220419
  6. CODEINE [Concomitant]
     Active Substance: CODEINE
     Dates: start: 20220419
  7. UREA [Concomitant]
     Active Substance: UREA
     Dates: start: 20220419
  8. ONDANSETRON [Concomitant]
     Active Substance: ONDANSETRON
     Dates: start: 20220426
  9. DOMPERIDONE [Concomitant]
     Active Substance: DOMPERIDONE
     Dates: start: 20220426
  10. MOVICOL [Concomitant]
     Active Substance: POLYETHYLENE GLYCOL 3350\POTASSIUM CHLORIDE\SODIUM BICARBONATE\SODIUM CHLORIDE
     Dates: start: 202104
  11. SENNOSIDES A AND B [Concomitant]
     Active Substance: SENNOSIDES A AND B
     Dates: start: 20220517
  12. NAUSEA [Concomitant]
     Dates: start: 20220517
  13. INSULIN NOS [Concomitant]
     Active Substance: INSULIN NOS
     Route: 058
     Dates: start: 20220628
  14. INDAPAMIDE [Concomitant]
     Active Substance: INDAPAMIDE
     Dates: start: 20220803, end: 20220822
  15. NAPROXEN [Concomitant]
     Active Substance: NAPROXEN
     Dates: start: 20220809, end: 20220929
  16. CAPTOPRIL [Concomitant]
     Active Substance: CAPTOPRIL
     Dates: start: 20220823
  17. ENSURE [Concomitant]
     Active Substance: AMINO ACIDS\DEXTROSE\ELECTROLYTES NOS\SOYBEAN OIL\VITAMINS
     Dates: start: 20220809
  18. METFORMIN [Concomitant]
     Active Substance: METFORMIN HYDROCHLORIDE
     Dates: start: 202105
  19. DUTASTERIDE [Concomitant]
     Active Substance: DUTASTERIDE
     Dates: start: 20220803
  20. CETIRIZINE HYDROCHLORIDE [Concomitant]
     Active Substance: CETIRIZINE HYDROCHLORIDE
     Dates: start: 20220815
  21. CETRABEN [LIGHT LIQUID PARAFFIN;WHITE SOFT PARAFFIN] [Concomitant]
     Dates: start: 20220815

REACTIONS (1)
  - Abdominal pain [Not Recovered/Not Resolved]

NARRATIVE: CASE EVENT DATE: 20220830
